FAERS Safety Report 17359254 (Version 1)
Quarter: 2020Q1

REPORT INFORMATION
  Report Type: Spontaneous
  Country: US (occurrence: US)
  Receive Date: 20200203
  Receipt Date: 20200203
  Transmission Date: 20200409
  Serious: No
  Sender: FDA-Public Use
  Company Number: US-CELGENEUS-USA-20200110337

PATIENT
  Age: 74 Year
  Sex: Female

DRUGS (1)
  1. OTEZLA [Suspect]
     Active Substance: APREMILAST
     Indication: PSORIATIC ARTHROPATHY
     Dosage: 10,20,30 MG (STARTER PACK)
     Route: 048
     Dates: start: 20200112

REACTIONS (3)
  - Frequent bowel movements [Unknown]
  - Gastrointestinal motility disorder [Unknown]
  - Headache [Unknown]

NARRATIVE: CASE EVENT DATE: 202001
